FAERS Safety Report 23890556 (Version 1)
Quarter: 2024Q2

REPORT INFORMATION
  Report Type: Report from Study
  Country: CN (occurrence: CN)
  Receive Date: 20240523
  Receipt Date: 20240523
  Transmission Date: 20240716
  Serious: Yes (Other)
  Sender: FDA-Public Use
  Company Number: CN-Merck Healthcare KGaA-2024027507

PATIENT
  Age: 43 Year
  Sex: Female

DRUGS (4)
  1. CETUXIMAB [Suspect]
     Active Substance: CETUXIMAB
     Indication: Colon cancer stage IV
     Dosage: UNK UNK, UNKNOWN
     Route: 065
     Dates: start: 20190131, end: 20190613
  2. OXALIPLATIN [Suspect]
     Active Substance: OXALIPLATIN
     Indication: Colon cancer stage IV
     Dosage: UNK UNK, UNKNOWN
     Route: 065
     Dates: start: 20190131, end: 20190613
  3. LEUCOVORIN [Suspect]
     Active Substance: LEUCOVORIN\LEUCOVORIN CALCIUM
     Indication: Colon cancer stage IV
     Dosage: UNK UNK, UNKNOWN
     Route: 065
     Dates: start: 20190131, end: 20190613
  4. FLUOROURACIL [Suspect]
     Active Substance: FLUOROURACIL
     Indication: Colon cancer stage IV
     Dosage: UNK UNK, UNKNOWN
     Route: 065
     Dates: start: 20190131, end: 20190613

REACTIONS (1)
  - Granulocyte count decreased [Unknown]
